FAERS Safety Report 9126905 (Version 1)
Quarter: 2013Q1

REPORT INFORMATION
  Report Type: Spontaneous
  Country: US (occurrence: US)
  Receive Date: 20130122
  Receipt Date: 20130122
  Transmission Date: 20140127
  Serious: No
  Sender: FDA-Public Use
  Company Number: US-009507513-1301USA010166

PATIENT
  Sex: Female

DRUGS (1)
  1. CLARITIN [Suspect]
     Indication: ALLERGY TO ANIMAL
     Dosage: 10 MG, QD
     Route: 048

REACTIONS (1)
  - Drug effect decreased [Unknown]
